FAERS Safety Report 8350800-0 (Version None)
Quarter: 2012Q2

REPORT INFORMATION
  Report Type: 
  Country: None (occurrence: None)
  Receive Date: 20120510
  Receipt Date: 20120502
  Transmission Date: 20120825
  Serious: No
  Sender: FDA-Public Use
  Company Number: US-MUTUAL PHARMACEUTICAL COMPANY, INC.-CLCY20120074

PATIENT
  Sex: Female
  Weight: 54.48 kg

DRUGS (4)
  1. COLCRYS [Suspect]
     Indication: BEHCET'S SYNDROME
     Route: 048
     Dates: start: 20110101
  2. COLCHICINE [Suspect]
     Indication: BEHCET'S SYNDROME
     Route: 048
     Dates: start: 20010101, end: 20110101
  3. DAPSONE [Concomitant]
     Indication: BEHCET'S SYNDROME
     Route: 048
  4. OMEPRAZOLE [Concomitant]
     Route: 048
     Dates: start: 20100101

REACTIONS (7)
  - PERICARDITIS [None]
  - CHEST PAIN [None]
  - CHEST DISCOMFORT [None]
  - GASTROOESOPHAGEAL REFLUX DISEASE [None]
  - DYSPNOEA [None]
  - PYREXIA [None]
  - OFF LABEL USE [None]
